FAERS Safety Report 12313904 (Version 3)
Quarter: 2016Q2

REPORT INFORMATION
  Report Type: Spontaneous
  Country: AT (occurrence: AT)
  Receive Date: 20160428
  Receipt Date: 20160601
  Transmission Date: 20160815
  Serious: Yes (Death, Other)
  Sender: FDA-Public Use
  Company Number: AT-ELI_LILLY_AND_COMPANY-AT201604007891

PATIENT
  Age: 72 Year
  Sex: Female

DRUGS (15)
  1. HALCION [Concomitant]
     Active Substance: TRIAZOLAM
  2. NORVAC [Concomitant]
     Active Substance: AMLODIPINE BESYLATE
  3. SINTROM [Concomitant]
     Active Substance: ACENOCOUMAROL
  4. MIRTAZAPIN [Concomitant]
     Active Substance: MIRTAZAPINE
  5. THROMBO ASS [Concomitant]
     Active Substance: ASPIRIN
  6. OLEOVIT                            /00056001/ [Concomitant]
  7. AQUAPHORIL [Concomitant]
  8. LISINOPRIL. [Concomitant]
     Active Substance: LISINOPRIL
  9. SPIRIVA [Concomitant]
     Active Substance: TIOTROPIUM BROMIDE MONOHYDRATE
  10. HUMULIN N [Suspect]
     Active Substance: INSULIN HUMAN
     Indication: TYPE 2 DIABETES MELLITUS
     Dosage: 4 U, EACH EVENING
     Route: 065
     Dates: start: 20160421, end: 20160421
  11. PANTOPRAZOL [Concomitant]
     Active Substance: PANTOPRAZOLE SODIUM
  12. SYMBICORT [Concomitant]
     Active Substance: BUDESONIDE\FORMOTEROL FUMARATE DIHYDRATE
  13. BETASERC                           /00141801/ [Concomitant]
     Active Substance: BETAHISTINE
  14. CRESTOR [Concomitant]
     Active Substance: ROSUVASTATIN CALCIUM
  15. JENTADUETO [Concomitant]
     Active Substance: LINAGLIPTIN\METFORMIN HYDROCHLORIDE

REACTIONS (3)
  - Accidental overdose [Unknown]
  - Hypoxia [Fatal]
  - Hypoglycaemia [Fatal]

NARRATIVE: CASE EVENT DATE: 20160421
